FAERS Safety Report 5232734-3 (Version None)
Quarter: 2007Q1

REPORT INFORMATION
  Report Type: 
  Country: None (occurrence: None)
  Receive Date: 20070206
  Receipt Date: 20070206
  Transmission Date: 20070707
  Serious: Yes (Hospitalization)
  Sender: FDA-Public Use
  Company Number: None

PATIENT
  Sex: Female
  Weight: 74.8435 kg

DRUGS (2)
  1. VIVAGLOBIN  20ML  ZLB [Suspect]
     Indication: HYPOGLOBULINAEMIA
     Dosage: 60ML ONCE SQ
     Route: 058
     Dates: start: 20070131, end: 20070131
  2. VIVAGLOBIN  20ML   ZLB [Suspect]
     Indication: HYPOGLOBULINAEMIA
     Dosage: 60ML ONCE SQ
     Route: 058
     Dates: start: 20070131, end: 20070131

REACTIONS (6)
  - ABDOMINAL DISTENSION [None]
  - BLISTER [None]
  - CELLULITIS [None]
  - DRUG INEFFECTIVE [None]
  - INFUSION SITE SWELLING [None]
  - TREATMENT NONCOMPLIANCE [None]
